FAERS Safety Report 25869003 (Version 1)
Quarter: 2025Q3

REPORT INFORMATION
  Report Type: Spontaneous
  Country: US (occurrence: None)
  Receive Date: 20250930
  Receipt Date: 20250930
  Transmission Date: 20251021
  Serious: Yes (Other)
  Sender: FDA-CTU
  Company Number: None

PATIENT
  Sex: Male

DRUGS (11)
  1. TESTOPEL [Suspect]
     Active Substance: TESTOSTERONE
     Indication: Testicular failure
     Route: 058
     Dates: end: 20200114
  2. ATORVASTATIN [Concomitant]
     Active Substance: ATORVASTATIN
  3. BOTOX [Concomitant]
     Active Substance: ONABOTULINUMTOXINA
  4. CITALOPRAM [Concomitant]
     Active Substance: CITALOPRAM
  5. CLARITIN CHW [Concomitant]
  6. VITAMIN D3 [Concomitant]
     Active Substance: CHOLECALCIFEROL
  7. ESOMEPRA MAG DR [Concomitant]
  8. GABAPENTIN [Concomitant]
     Active Substance: GABAPENTIN
  9. INDOMETHACIN [Concomitant]
     Active Substance: INDOMETHACIN
  10. RIBOFLAVIN POW [Concomitant]
  11. SYMBICORT [Concomitant]
     Active Substance: BUDESONIDE\FORMOTEROL FUMARATE DIHYDRATE

REACTIONS (2)
  - Leukaemia [None]
  - Transient ischaemic attack [None]
